FAERS Safety Report 6619721-5 (Version None)
Quarter: 2010Q1

REPORT INFORMATION
  Report Type: 
  Country: None (occurrence: None)
  Receive Date: 20100309
  Receipt Date: 20100224
  Transmission Date: 20100710
  Serious: Yes (Hospitalization)
  Sender: FDA-Public Use
  Company Number: PHHY2010DE11241

PATIENT
  Sex: Male

DRUGS (1)
  1. ACLASTA [Suspect]
     Route: 042

REACTIONS (3)
  - COAGULOPATHY [None]
  - HAEMORRHAGE [None]
  - SURGERY [None]
